FAERS Safety Report 12249127 (Version 1)
Quarter: 2016Q2

REPORT INFORMATION
  Report Type: Spontaneous
  Country: PR (occurrence: US)
  Receive Date: 20160408
  Receipt Date: 20160408
  Transmission Date: 20160815
  Serious: Yes (Other)
  Sender: FDA-Public Use
  Company Number: PR-MYLANLABS-2016M1013740

PATIENT

DRUGS (1)
  1. LEVETIRACETAM. [Suspect]
     Active Substance: LEVETIRACETAM
     Dosage: UNK
     Route: 065

REACTIONS (1)
  - Seizure [Unknown]
